FAERS Safety Report 8882862 (Version 1)
Quarter: 2012Q4

REPORT INFORMATION
  Report Type: 
  Country: US (occurrence: US)
  Receive Date: 20121105
  Receipt Date: 20121105
  Transmission Date: 20130627
  Serious: Yes (Other)
  Sender: FDA-Public Use
  Company Number: US-TEVA-368037USA

PATIENT
  Age: 89 Year
  Sex: Male

DRUGS (3)
  1. AMOXICILLIN\CLAVULANIC ACID [Suspect]
     Indication: ANTIBIOTIC THERAPY
     Route: 048
  2. NITROFURANTOIN [Suspect]
     Indication: ANTIBIOTIC THERAPY
     Route: 048
  3. PIPERACILLIN, TAZOBACTAM [Suspect]
     Indication: ANTIBIOTIC THERAPY
     Route: 042

REACTIONS (2)
  - Staphylococcal infection [Not Recovered/Not Resolved]
  - Diarrhoea [Recovered/Resolved]
